FAERS Safety Report 4954777-7 (Version None)
Quarter: 2006Q1

REPORT INFORMATION
  Report Type: 
  Country: None (occurrence: None)
  Receive Date: 20060322
  Receipt Date: 20060302
  Transmission Date: 20060701
  Serious: Yes (Other)
  Sender: FDA-Public Use
  Company Number: FR200602000118

PATIENT
  Age: 80 Year
  Sex: Female

DRUGS (6)
  1. FORTEO [Suspect]
     Indication: OSTEOPOROSIS
     Dosage: 20 UG, DAILY (1/D), SUBCUTANEOUS
     Route: 058
     Dates: start: 20051022, end: 20060302
  2. FORTEO [Concomitant]
  3. HYZAAR [Concomitant]
  4. FENOFIBRATE [Concomitant]
  5. PRAXILENE (NAFTIDROFURYL OXALATE) [Concomitant]
  6. VASTAREL (TRIMETAZIDINE HYDROCHLORIDE) [Concomitant]

REACTIONS (4)
  - ABDOMINAL PAIN [None]
  - BREAST MASS [None]
  - NAUSEA [None]
  - WEIGHT DECREASED [None]
